FAERS Safety Report 5968487-0 (Version None)
Quarter: 2008Q4

REPORT INFORMATION
  Report Type: 
  Country: None (occurrence: None)
  Receive Date: 20081121
  Receipt Date: 20081121
  Transmission Date: 20090506
  Serious: Yes (Other)
  Sender: FDA-Public Use
  Company Number: None

PATIENT
  Age: 25 Year
  Sex: Female
  Weight: 57.1532 kg

DRUGS (3)
  1. DROSPIRENONE AND ETHINYL ESTRADIOL [Suspect]
     Indication: ORAL CONTRACEPTION
     Dosage: NO LISTED DAILY PO
     Route: 048
     Dates: start: 20081005, end: 20081120
  2. YAZ [Suspect]
  3. YASMIN [Suspect]

REACTIONS (5)
  - ACNE [None]
  - METRORRHAGIA [None]
  - MIGRAINE [None]
  - PRODUCT QUALITY ISSUE [None]
  - WEIGHT INCREASED [None]
